FAERS Safety Report 11879887 (Version 2)
Quarter: 2016Q1

REPORT INFORMATION
  Report Type: Spontaneous
  Country: US (occurrence: US)
  Receive Date: 20151230
  Receipt Date: 20160115
  Transmission Date: 20160526
  Serious: Yes (Other)
  Sender: FDA-Public Use
  Company Number: US-BEH-2015057151

PATIENT
  Age: 58 Year
  Sex: Female
  Weight: 87 kg

DRUGS (31)
  1. HIZENTRA [Suspect]
     Active Substance: HUMAN IMMUNOGLOBULIN G
     Indication: IMMUNODEFICIENCY COMMON VARIABLE
     Route: 058
     Dates: start: 20150520
  2. DIPHENHYDRAMINE. [Concomitant]
     Active Substance: DIPHENHYDRAMINE
  3. PROTONIX [Concomitant]
     Active Substance: PANTOPRAZOLE SODIUM
  4. BUMETANIDE. [Concomitant]
     Active Substance: BUMETANIDE
  5. VENTOLIN [Concomitant]
     Active Substance: ALBUTEROL SULFATE
  6. GUAIFENESIN. [Concomitant]
     Active Substance: GUAIFENESIN
  7. CYPROHEPTADINE. [Concomitant]
     Active Substance: CYPROHEPTADINE
  8. PERCOCET [Concomitant]
     Active Substance: ACETAMINOPHEN\OXYCODONE HYDROCHLORIDE
  9. RESTORIL [Concomitant]
     Active Substance: TEMAZEPAM
  10. GRALISE [Concomitant]
     Active Substance: GABAPENTIN
  11. ACETAMINOPHEN. [Concomitant]
     Active Substance: ACETAMINOPHEN
  12. MAXALT [Concomitant]
     Active Substance: RIZATRIPTAN BENZOATE
  13. CRESTOR [Concomitant]
     Active Substance: ROSUVASTATIN CALCIUM
  14. TIZANIDINE. [Concomitant]
     Active Substance: TIZANIDINE
  15. KEFLEX [Concomitant]
     Active Substance: CEPHALEXIN
  16. LIDOCAINE/PRILOCAINE [Concomitant]
  17. SODIUM CHLORIDE. [Concomitant]
     Active Substance: SODIUM CHLORIDE
  18. CYMBALTA [Concomitant]
     Active Substance: DULOXETINE HYDROCHLORIDE
  19. ADVAIR HFA [Concomitant]
     Active Substance: FLUTICASONE PROPIONATE\SALMETEROL XINAFOATE
  20. METHYLPREDNISONE [Concomitant]
     Active Substance: METHYLPREDNISOLONE
  21. HIZENTRA [Suspect]
     Active Substance: HUMAN IMMUNOGLOBULIN G
     Route: 058
     Dates: start: 20150520
  22. EPIPEN [Concomitant]
     Active Substance: EPINEPHRINE
  23. SPIRIVA [Concomitant]
     Active Substance: TIOTROPIUM BROMIDE MONOHYDRATE
  24. FLUCONAZOLE. [Concomitant]
     Active Substance: FLUCONAZOLE
  25. WARFARIN [Concomitant]
     Active Substance: WARFARIN
  26. VITAMIN D [Concomitant]
     Active Substance: CHOLECALCIFEROL
  27. CLARITIN [Concomitant]
     Active Substance: LORATADINE
  28. ALBUTEROL. [Concomitant]
     Active Substance: ALBUTEROL
  29. ASPIRIN. [Concomitant]
     Active Substance: ASPIRIN
  30. PATADAY [Concomitant]
     Active Substance: OLOPATADINE HYDROCHLORIDE
  31. LISINOPRIL. [Concomitant]
     Active Substance: LISINOPRIL

REACTIONS (2)
  - Gastric disorder [Recovered/Resolved]
  - Escherichia infection [Recovered/Resolved]

NARRATIVE: CASE EVENT DATE: 20151125
